FAERS Safety Report 13745700 (Version 6)
Quarter: 2020Q2

REPORT INFORMATION
  Report Type: Spontaneous
  Country: FR (occurrence: FR)
  Receive Date: 20170712
  Receipt Date: 20200617
  Transmission Date: 20200713
  Serious: Yes (Hospitalization)
  Sender: FDA-Public Use
  Company Number: FR-PFIZER INC-2017293122

PATIENT
  Age: 43 Year
  Sex: Male

DRUGS (20)
  1. TIORFAN [Suspect]
     Active Substance: RACECADOTRIL
     Indication: DIARRHOEA
     Dosage: 100 MG, 3X/DAY ((MORNING, NOON AND EVENING))
     Route: 048
     Dates: start: 2017, end: 2017
  2. DITROPAN [Concomitant]
     Active Substance: OXYBUTYNIN CHLORIDE
     Dosage: UNK
     Dates: start: 2017, end: 20170509
  3. CANCIDAS [Suspect]
     Active Substance: CASPOFUNGIN ACETATE
     Indication: FUNGAL INFECTION
     Dosage: 70 MG, 1X/DAY
     Route: 042
     Dates: start: 2017, end: 2017
  4. CELLCEPT [Suspect]
     Active Substance: MYCOPHENOLATE MOFETIL\MYCOPHENOLATE MOFETIL HYDROCHLORIDE
     Indication: PROPHYLAXIS AGAINST TRANSPLANT REJECTION
     Dosage: 1000 MG, 2X/DAY(ONE TABLET ONCE IN THE MORNING AND ONCE IN THE EVENING)
     Route: 048
     Dates: start: 2017
  5. PARACETAMOL [Suspect]
     Active Substance: ACETAMINOPHEN
     Indication: PYREXIA
  6. BACTRIM [Concomitant]
     Active Substance: SULFAMETHOXAZOLE\TRIMETHOPRIM
     Dosage: UNK
     Dates: start: 2017, end: 20170526
  7. NEORAL [Suspect]
     Active Substance: CYCLOSPORINE
     Indication: PROPHYLAXIS AGAINST TRANSPLANT REJECTION
     Dosage: 40 MG, 2X/DAY (ONE TABLET IN THE MORNING AND ONE TABLET IN THE EVENING)
     Route: 048
     Dates: start: 2017, end: 2017
  8. SPASFON [PHLOROGLUCINOL] [Suspect]
     Active Substance: PHLOROGLUCINOL
     Indication: ABDOMINAL PAIN
     Dosage: 2 DF, AS NEEDED (TWO TABLETS THREE TIMES DAILY IF ABDOMINAL PAIN)
     Route: 048
     Dates: start: 2017, end: 2017
  9. TIENAM [Concomitant]
     Active Substance: CILASTATIN SODIUM\IMIPENEM
     Dosage: 500 MG, 3X/DAY (EVERY 8 HOURS)
     Dates: start: 201703, end: 20170403
  10. SMOFKABIVEN [Suspect]
     Active Substance: AMINO ACIDS\DEXTROSE\ELECTROLYTES NOS\SOYBEAN OIL
     Indication: PARENTERAL NUTRITION
     Dosage: 1920 ML, DAILY (80 ML /HOUR)
     Route: 042
     Dates: start: 2017, end: 2017
  11. ACUPAN [Suspect]
     Active Substance: NEFOPAM HYDROCHLORIDE
     Indication: PAIN
     Dosage: 20 MG, AS NEEDED (20 MG EVERY SIX HOURS IF PAIN OCCURRED)
     Route: 042
     Dates: start: 2017, end: 2017
  12. PARACETAMOL [Suspect]
     Active Substance: ACETAMINOPHEN
     Indication: PAIN
     Dosage: 3 G, DAILY (IF PAIN OR FEVER OCCURRED)
     Route: 048
     Dates: start: 2017, end: 2017
  13. ZYVOXID [Concomitant]
     Active Substance: LINEZOLID
     Dosage: 600 MG, 2X/DAY (EVERY 12 HOURS)
     Dates: start: 201703, end: 20170430
  14. CELLCEPT [Concomitant]
     Active Substance: MYCOPHENOLATE MOFETIL\MYCOPHENOLATE MOFETIL HYDROCHLORIDE
     Indication: PROPHYLAXIS AGAINST TRANSPLANT REJECTION
     Dosage: 2000 MG, 1X/DAY
     Route: 048
     Dates: start: 2017
  15. SOLU-MEDROL [Suspect]
     Active Substance: METHYLPREDNISOLONE SODIUM SUCCINATE
     Dosage: 160 MG, 1X/DAY
     Route: 042
     Dates: start: 2017, end: 20170609
  16. EUPANTOL [Suspect]
     Active Substance: PANTOPRAZOLE SODIUM
     Indication: GASTROOESOPHAGEAL REFLUX DISEASE
     Dosage: 40 MG, 1X/DAY
     Route: 042
     Dates: start: 2017, end: 2017
  17. GAVISCON [SODIUM ALGINATE;SODIUM BICARBONATE] [Suspect]
     Active Substance: SODIUM ALGINATE\SODIUM BICARBONATE
     Indication: GASTROOESOPHAGEAL REFLUX DISEASE
     Dosage: 3 DF, DAILY
     Route: 048
     Dates: start: 2017, end: 2017
  18. EUPRESSYL [URAPIDIL] [Concomitant]
     Active Substance: URAPIDIL
     Dosage: 48 MG, DAILY (2 MG PER HOUR)
     Dates: start: 201703, end: 20170330
  19. HYDROCORTISONE. [Concomitant]
     Active Substance: HYDROCORTISONE
     Dosage: UNK
  20. SPASFON [PHLOROGLUCINOL] [Suspect]
     Active Substance: PHLOROGLUCINOL
     Indication: PAIN

REACTIONS (2)
  - Amnesia [Recovering/Resolving]
  - Confusional state [Recovering/Resolving]

NARRATIVE: CASE EVENT DATE: 20170329
